FAERS Safety Report 13161308 (Version 1)
Quarter: 2017Q1

REPORT INFORMATION
  Report Type: Spontaneous
  Country: US (occurrence: US)
  Receive Date: 20170130
  Receipt Date: 20170130
  Transmission Date: 20170428
  Serious: No
  Sender: FDA-Public Use
  Company Number: US-TEVA-729983ACC

PATIENT
  Age: 53 Year
  Sex: Male

DRUGS (15)
  1. DOXYCYCLIN [Concomitant]
     Active Substance: DOXYCYCLINE
  2. OXYCOD [Concomitant]
  3. CYCLOBENZAPRAM [Concomitant]
  4. COPAXONE [Suspect]
     Active Substance: GLATIRAMER ACETATE
     Indication: MULTIPLE SCLEROSIS
     Route: 058
     Dates: start: 20161105
  5. TIZANIDINE. [Concomitant]
     Active Substance: TIZANIDINE
  6. B6 NATURAL [Concomitant]
  7. ESCITALOPRAM [Concomitant]
     Active Substance: ESCITALOPRAM OXALATE
  8. DIAZEPAM. [Concomitant]
     Active Substance: DIAZEPAM
  9. HYDROCHLOROTHIAZID [Concomitant]
     Active Substance: HYDROCHLOROTHIAZIDE
  10. IRON [Concomitant]
     Active Substance: IRON
  11. TRAZODONE [Concomitant]
     Active Substance: TRAZODONE HYDROCHLORIDE
  12. BUPROPION. [Concomitant]
     Active Substance: BUPROPION
  13. VITAMIN C [Concomitant]
     Active Substance: ASCORBIC ACID
  14. OXYCONTIN [Concomitant]
     Active Substance: OXYCODONE HYDROCHLORIDE
  15. BISACODYL. [Concomitant]
     Active Substance: BISACODYL

REACTIONS (4)
  - Injection site pruritus [Unknown]
  - Fall [Unknown]
  - Injection site erythema [Unknown]
  - Contusion [Unknown]

NARRATIVE: CASE EVENT DATE: 201612
